FAERS Safety Report 4666609-5 (Version None)
Quarter: 2005Q2

REPORT INFORMATION
  Report Type: 
  Country: None (occurrence: None)
  Receive Date: 20050518
  Receipt Date: 20050504
  Transmission Date: 20051028
  Serious: Yes (Hospitalization)
  Sender: FDA-Public Use
  Company Number: MK200406-0007-2

PATIENT
  Sex: Female

DRUGS (1)
  1. METHADOSE [Suspect]
     Indication: DRUG DETOXIFICATION
     Dosage: 0.075 MG BID, PO
     Route: 048

REACTIONS (5)
  - AGITATION [None]
  - ANXIETY [None]
  - CONSTIPATION [None]
  - INCORRECT DOSE ADMINISTERED [None]
  - RESPIRATORY DISTRESS [None]
